FAERS Safety Report 9121957 (Version 1)
Quarter: 2013Q1

REPORT INFORMATION
  Report Type: Spontaneous
  Country: AU (occurrence: AU)
  Receive Date: 20130114
  Receipt Date: 20130114
  Transmission Date: 20140127
  Serious: Yes (Hospitalization)
  Sender: FDA-Public Use
  Company Number: AU-ASTRAZENECA-2013SE00804

PATIENT
  Age: 43 Year
  Sex: Female

DRUGS (8)
  1. FENTANYL [Suspect]
     Route: 042
  2. LIGNOCAINE [Suspect]
     Route: 042
  3. PROPOFOL [Suspect]
     Route: 042
  4. TRAMADOL HYDROCHLORIDE [Suspect]
     Route: 042
  5. DEXAMETHASONE [Suspect]
     Route: 042
  6. GRANISETRON [Suspect]
     Route: 042
  7. MIDAZOLAM [Suspect]
     Route: 042
  8. PARECOXIB SODIUM [Suspect]
     Route: 042

REACTIONS (4)
  - Dyskinesia [Unknown]
  - Palpitations [Unknown]
  - Dyskinesia [Unknown]
  - Convulsion [Unknown]
